FAERS Safety Report 23446411 (Version 1)
Quarter: 2024Q1

REPORT INFORMATION
  Report Type: Report from Study
  Country: US (occurrence: US)
  Receive Date: 20240126
  Receipt Date: 20240126
  Transmission Date: 20240410
  Serious: Yes (Hospitalization, Other)
  Sender: FDA-Public Use
  Company Number: US-BAYER-2024A013030

PATIENT
  Age: 68 Year
  Sex: Female

DRUGS (1)
  1. ADEMPAS [Suspect]
     Active Substance: RIOCIGUAT
     Indication: Pulmonary hypertension
     Dosage: 1 DF, TID
     Route: 048
     Dates: start: 20231214

REACTIONS (2)
  - Fluid retention [Not Recovered/Not Resolved]
  - Renal impairment [None]

NARRATIVE: CASE EVENT DATE: 20240118
